FAERS Safety Report 4986095-5 (Version None)
Quarter: 2006Q2

REPORT INFORMATION
  Report Type: 
  Country: None (occurrence: None)
  Receive Date: 20060428
  Receipt Date: 20060413
  Transmission Date: 20061013
  Serious: Yes (Hospitalization)
  Sender: FDA-Public Use
  Company Number: US-JNJFOC-20060405509

PATIENT
  Age: 58 Year
  Sex: Female

DRUGS (13)
  1. FLEXERIL [Suspect]
     Route: 048
  2. ZYPREXA [Interacting]
     Indication: DRUG USE FOR UNKNOWN INDICATION
     Route: 048
  3. PROTONIX [Interacting]
     Indication: DRUG USE FOR UNKNOWN INDICATION
     Route: 048
  4. TRAZODONE HCL [Interacting]
     Indication: DRUG USE FOR UNKNOWN INDICATION
     Route: 048
  5. ATIVAN [Interacting]
     Indication: DRUG USE FOR UNKNOWN INDICATION
     Route: 048
  6. ZYRTEC [Interacting]
     Indication: DRUG USE FOR UNKNOWN INDICATION
     Route: 048
  7. SEROQUEL [Interacting]
     Indication: DRUG USE FOR UNKNOWN INDICATION
     Route: 048
  8. DIOVAN [Interacting]
     Indication: DRUG USE FOR UNKNOWN INDICATION
     Route: 048
  9. COMBIVENT [Interacting]
     Route: 055
  10. COMBIVENT [Interacting]
     Indication: DRUG USE FOR UNKNOWN INDICATION
     Route: 055
  11. ADVAIR DISKUS 100/50 [Interacting]
     Route: 055
  12. ADVAIR DISKUS 100/50 [Interacting]
     Indication: DRUG USE FOR UNKNOWN INDICATION
     Route: 055
  13. NASACORT [Interacting]
     Indication: DRUG USE FOR UNKNOWN INDICATION
     Route: 055

REACTIONS (6)
  - DIZZINESS [None]
  - DRUG INTERACTION [None]
  - HALLUCINATION [None]
  - LETHARGY [None]
  - MENTAL STATUS CHANGES [None]
  - URINARY TRACT INFECTION [None]
